FAERS Safety Report 8173917-2 (Version None)
Quarter: 2012Q1

REPORT INFORMATION
  Report Type: 
  Country: None (occurrence: None)
  Receive Date: 20120229
  Receipt Date: 20120221
  Transmission Date: 20120608
  Serious: Yes (Death, Hospitalization, Other)
  Sender: FDA-Public Use
  Company Number: DE-ELI_LILLY_AND_COMPANY-DE201202006141

PATIENT
  Sex: Female

DRUGS (8)
  1. FORTEO [Suspect]
     Indication: OSTEOPOROSIS
     Dosage: UNK, QD
     Route: 058
     Dates: start: 20110704
  2. CORTISONE ACETATE [Concomitant]
  3. TORSEMIDE [Concomitant]
  4. AMITRIPTYLINE HCL [Concomitant]
  5. MORPHINE [Concomitant]
  6. ANTIHYPERTENSIVES [Concomitant]
  7. LEVOTHYROXINE SODIUM [Concomitant]
  8. ASPIRIN [Concomitant]

REACTIONS (2)
  - WOUND [None]
  - LOWER LIMB FRACTURE [None]
